FAERS Safety Report 6510634-6 (Version None)
Quarter: 2009Q4

REPORT INFORMATION
  Report Type: 
  Country: None (occurrence: None)
  Receive Date: 20091222
  Receipt Date: 20090108
  Transmission Date: 20100525
  Serious: No
  Sender: FDA-Public Use
  Company Number: US-ASTRAZENECA-2009UW00749

PATIENT
  Age: 56 Year
  Sex: Female

DRUGS (3)
  1. CRESTOR [Suspect]
     Indication: BLOOD CHOLESTEROL
     Route: 048
     Dates: start: 20080501
  2. ESOMEPRAZOLE MAGNESIUM [Concomitant]
     Route: 048
  3. HORMONE DROPS [Concomitant]

REACTIONS (3)
  - MUSCLE STRAIN [None]
  - MYALGIA [None]
  - PAIN IN EXTREMITY [None]
